FAERS Safety Report 24122624 (Version 2)
Quarter: 2024Q3

REPORT INFORMATION
  Report Type: Spontaneous
  Country: KR (occurrence: KR)
  Receive Date: 20240723
  Receipt Date: 20240725
  Transmission Date: 20241017
  Serious: Yes (Disabling, Other)
  Sender: SAMSUNG BIOEPIS
  Company Number: KR-SAMSUNG BIOEPIS-SB-2024-21913

PATIENT
  Age: 18 Year
  Sex: Male

DRUGS (1)
  1. RANIBIZUMAB-NUNA [Suspect]
     Active Substance: RANIBIZUMAB-NUNA
     Indication: Neovascular age-related macular degeneration
     Dosage: SINGLE DOSE, 2.3 MG/0.23 ML;
     Route: 065
     Dates: start: 20240619

REACTIONS (1)
  - Blindness [Not Recovered/Not Resolved]

NARRATIVE: CASE EVENT DATE: 20240619
